FAERS Safety Report 15860064 (Version 1)
Quarter: 2019Q1

REPORT INFORMATION
  Report Type: Spontaneous
  Country: US (occurrence: US)
  Receive Date: 20190123
  Receipt Date: 20190123
  Transmission Date: 20190417
  Serious: Yes (Other)
  Sender: FDA-Public Use
  Company Number: US-JNJFOC-20190118774

PATIENT
  Sex: Male

DRUGS (3)
  1. SURGIFOAM [Suspect]
     Active Substance: GELATIN\THROMBIN HUMAN
     Indication: HAEMOSTASIS
     Route: 065
  2. EVITHROM [Suspect]
     Active Substance: THROMBIN HUMAN
     Indication: HAEMOSTASIS
     Route: 061
  3. GELFOAM [Suspect]
     Active Substance: GELATIN\THROMBIN HUMAN
     Indication: HAEMOSTASIS
     Route: 065

REACTIONS (6)
  - Product use in unapproved indication [Unknown]
  - Orbital oedema [Unknown]
  - Hypersensitivity [Unknown]
  - Vomiting [Unknown]
  - Off label use [Unknown]
  - Swelling face [Unknown]

NARRATIVE: CASE EVENT DATE: 20180701
